FAERS Safety Report 6064950-5 (Version None)
Quarter: 2009Q1

REPORT INFORMATION
  Report Type: 
  Country: None (occurrence: None)
  Receive Date: 20090204
  Receipt Date: 20090128
  Transmission Date: 20090719
  Serious: Yes (Hospitalization)
  Sender: FDA-Public Use
  Company Number: FR-MERCK-0810FRA00096

PATIENT
  Age: 86 Year
  Sex: Female

DRUGS (6)
  1. COZAAR [Suspect]
     Route: 048
     Dates: start: 20030101
  2. TRIMETAZIDINE HYDROCHLORIDE [Suspect]
     Route: 048
     Dates: start: 20070101
  3. BIMATOPROST AND TIMOLOL MALEATE [Suspect]
     Route: 047
     Dates: start: 20070101
  4. AMLODIPINE BESYLATE [Suspect]
     Route: 048
     Dates: start: 20030101
  5. ASPIRIN LYSINE [Suspect]
     Route: 048
     Dates: start: 20030101
  6. ESOMEPRAZOLE MAGNESIUM [Suspect]
     Route: 048
     Dates: start: 20030101

REACTIONS (2)
  - PEMPHIGOID [None]
  - PRURITUS [None]
